FAERS Safety Report 10754052 (Version 2)
Quarter: 2015Q2

REPORT INFORMATION
  Report Type: Spontaneous
  Country: US (occurrence: US)
  Receive Date: 20150202
  Receipt Date: 20150421
  Transmission Date: 20150821
  Serious: No
  Sender: FDA-Public Use
  Company Number: US-LEO PHARMA-232159

PATIENT
  Age: 44 Year
  Sex: Female

DRUGS (1)
  1. PICATO [Suspect]
     Active Substance: INGENOL MEBUTATE
     Indication: ACTINIC KERATOSIS
     Dates: start: 20150126, end: 20150128

REACTIONS (6)
  - Application site pain [Recovered/Resolved]
  - Lip swelling [Recovered/Resolved]
  - Insomnia [Recovered/Resolved]
  - Application site erythema [Recovered/Resolved]
  - Swelling [Recovered/Resolved]
  - Application site exfoliation [Recovered/Resolved]

NARRATIVE: CASE EVENT DATE: 20150126
